FAERS Safety Report 18555737 (Version 2)
Quarter: 2020Q4

REPORT INFORMATION
  Report Type: Spontaneous
  Country: US (occurrence: US)
  Receive Date: 20201127
  Receipt Date: 20201218
  Transmission Date: 20210114
  Serious: No
  Sender: FDA-Public Use
  Company Number: US-PFIZER INC-2020450172

PATIENT
  Age: 54 Year
  Sex: Female
  Weight: 64.05 kg

DRUGS (20)
  1. SODIUM BICARBONATE. [Suspect]
     Active Substance: SODIUM BICARBONATE
     Dosage: UNK (100 MEQ/ML)
     Route: 042
     Dates: start: 20201106
  2. ONDANSETRON [Concomitant]
     Active Substance: ONDANSETRON
     Dosage: 8 MILLIGRAM
     Dates: start: 20170719
  3. AXITINIB [Concomitant]
     Active Substance: AXITINIB
     Indication: RENAL CELL CARCINOMA
     Dosage: 5 MILLIGRAM, BID
     Route: 048
     Dates: start: 20170720, end: 20200826
  4. IMODIUM A-D [Concomitant]
     Active Substance: LOPERAMIDE HYDROCHLORIDE
     Dosage: 2 MILLIGRAM
     Dates: start: 20171102
  5. SYNTHROID [Concomitant]
     Active Substance: LEVOTHYROXINE SODIUM
     Dosage: 100 MICROGRAM
     Dates: start: 20190117
  6. INSULIN [Suspect]
     Active Substance: INSULIN NOS
     Dosage: 10 IU (10 UNITS)
     Route: 042
     Dates: start: 20201106
  7. VELTASSA [Suspect]
     Active Substance: PATIROMER
     Dosage: 8.4 G
     Dates: start: 20201106
  8. DEXTROSE. [Suspect]
     Active Substance: DEXTROSE
     Dosage: 50% IN WATER 25
     Route: 042
     Dates: start: 20201106
  9. ZOLPIDEM TARTRATE. [Concomitant]
     Active Substance: ZOLPIDEM TARTRATE
     Dosage: 5 MILLIGRAM
     Dates: start: 20170626
  10. FAMCICLOVIR. [Concomitant]
     Active Substance: FAMCICLOVIR
     Dosage: 500 MILLIGRAM
     Dates: start: 20170626
  11. ZOLEDRONIC ACID [Concomitant]
     Active Substance: ZOLEDRONIC ACID
     Dosage: 3 MILLIGRAM
     Dates: start: 20170705
  12. GABAPENTIN. [Concomitant]
     Active Substance: GABAPENTIN
     Dosage: 100 MILLIGRAM
     Dates: start: 20200423
  13. MK 3475 [Concomitant]
     Active Substance: PEMBROLIZUMAB
     Indication: RENAL CELL CARCINOMA
     Dosage: 200 MG, EVERY 3 WEEKS (Q3W)
     Route: 042
     Dates: start: 20170720, end: 20190702
  14. AXITINIB [Concomitant]
     Active Substance: AXITINIB
     Dosage: 6 MILLIGRAM, BID (CYCLE 51)
     Route: 048
     Dates: start: 20200827, end: 20200903
  15. UREACIN [Concomitant]
     Dosage: 1 DOSAGE FORM
     Dates: start: 20190614
  16. MK 3475 [Concomitant]
     Active Substance: PEMBROLIZUMAB
     Dosage: 200 MILLIGRAM, Q3W (CYCLE 35)
     Route: 042
     Dates: start: 20190725, end: 20190725
  17. TYLENOL [Concomitant]
     Active Substance: ACETAMINOPHEN
     Dosage: 500 MILLIGRAM
     Dates: start: 202006
  18. METHYLPREDNISOLONE ACETATE. [Suspect]
     Active Substance: METHYLPREDNISOLONE ACETATE
     Dosage: 125 MG, DAILY (125 MG IV ^PUSH^ DAILY)
     Route: 042
     Dates: start: 20201109, end: 20201112
  19. BACTERIOSTATIC SODIUM CHLORIDE [Suspect]
     Active Substance: SODIUM CHLORIDE
     Dosage: 1000 ML (3 LITERS OF SODIUM CHLORIDE 0.9% BOLUS 1000 ML AS CONTINUOUS INFUSION)
     Route: 040
     Dates: start: 20201106, end: 20201113
  20. NAPROXEN. [Concomitant]
     Active Substance: NAPROXEN
     Dosage: 250 MILLIGRAM
     Dates: start: 20200521

REACTIONS (1)
  - Drug ineffective [Unknown]

NARRATIVE: CASE EVENT DATE: 202011
